FAERS Safety Report 8795660 (Version 1)
Quarter: 2012Q4

REPORT INFORMATION
  Report Type: 
  Country: US (occurrence: US)
  Receive Date: 20120917
  Receipt Date: 20120917
  Transmission Date: 20130627
  Serious: No
  Sender: FDA-Public Use
  Company Number: US-ASTRAZENECA-2012SE57586

PATIENT
  Age: 24273 Day
  Sex: Female
  Weight: 47.6 kg

DRUGS (15)
  1. NEXIUM [Suspect]
     Indication: GASTROOESOPHAGEAL REFLUX DISEASE
     Route: 048
     Dates: end: 2011
  2. SYMBICORT [Suspect]
     Indication: ASTHMA
     Dosage: 160/4.5ug two puffs two times daily
     Route: 055
     Dates: start: 201208, end: 20120814
  3. SYMBICORT [Suspect]
     Indication: CHRONIC OBSTRUCTIVE PULMONARY DISEASE
     Dosage: 160/4.5ug two puffs two times daily
     Route: 055
     Dates: start: 201208, end: 20120814
  4. DEXALANT [Concomitant]
     Indication: GASTROOESOPHAGEAL REFLUX DISEASE
     Route: 048
  5. GABAPENTIN [Concomitant]
     Indication: GASTROOESOPHAGEAL REFLUX DISEASE
     Dosage: 100 mg two-three times daily
     Route: 048
  6. DIAZEPAM [Concomitant]
     Dosage: 10 mg TID ^lot of times break in half and take 5 mg^
  7. DILTALAZAM [Concomitant]
     Indication: ATRIAL FIBRILLATION
     Route: 048
  8. FORIDIL [Concomitant]
     Indication: CHRONIC OBSTRUCTIVE PULMONARY DISEASE
     Dosage: one or two puffs BID
     Route: 048
  9. SPIRIVA [Concomitant]
     Indication: CHRONIC OBSTRUCTIVE PULMONARY DISEASE
     Dosage: one or two puffs BID
     Route: 048
  10. CALCIUM WITH VIT D [Concomitant]
     Indication: OSTEOPOROSIS
     Dosage: BID
  11. VITAMIN E [Concomitant]
     Route: 048
  12. PROBIOTIC OTC [Concomitant]
     Dosage: daily
     Route: 048
  13. BENADRYL [Concomitant]
  14. RECLAST [Concomitant]
     Indication: OSTEOPOROSIS
     Dosage: yearly
     Route: 042
  15. DIGOXIN [Concomitant]

REACTIONS (3)
  - Oesophageal spasm [Unknown]
  - Cough [Not Recovered/Not Resolved]
  - Dysphonia [Not Recovered/Not Resolved]
